FAERS Safety Report 7044540-8 (Version None)
Quarter: 2010Q4

REPORT INFORMATION
  Report Type: 
  Country: None (occurrence: None)
  Receive Date: 20101014
  Receipt Date: 20101007
  Transmission Date: 20110411
  Serious: Yes (Hospitalization)
  Sender: FDA-Public Use
  Company Number: IE-US-EMD SERONO, INC.-7011111

PATIENT
  Sex: Female

DRUGS (2)
  1. REBIF [Suspect]
     Indication: SECONDARY PROGRESSIVE MULTIPLE SCLEROSIS
     Dates: start: 20010731, end: 20100604
  2. REBIF [Suspect]
     Dates: start: 20100719

REACTIONS (9)
  - AGITATION [None]
  - ASTHENIA [None]
  - CONFUSIONAL STATE [None]
  - HALLUCINATION, VISUAL [None]
  - HYPONATRAEMIA [None]
  - MUSCULAR WEAKNESS [None]
  - OFF LABEL USE [None]
  - SEPSIS [None]
  - URINARY TRACT INFECTION [None]
